FAERS Safety Report 6327246-X (Version None)
Quarter: 2009Q3

REPORT INFORMATION
  Report Type: 
  Country: None (occurrence: None)
  Receive Date: 20090825
  Receipt Date: 20090824
  Transmission Date: 20100115
  Serious: Yes (Hospitalization, Other)
  Sender: FDA-Public Use
  Company Number: US-RB-019752-09

PATIENT
  Age: 41 Year
  Sex: Female

DRUGS (6)
  1. SUBOXONE [Suspect]
     Dosage: DOSE UNKNOWN.
     Route: 060
     Dates: start: 20080101, end: 20090801
  2. SUBOXONE [Suspect]
     Dosage: DOSE UNKNOWN.
     Route: 060
     Dates: start: 20090801
  3. SEROQUEL [Suspect]
     Indication: DEPRESSION
     Dosage: DOSING INFORMATION UNKNOWN
     Route: 065
     Dates: start: 20090811, end: 20090812
  4. ALCOHOL [Suspect]
     Indication: ALCOHOL ABUSE
  5. COREG [Concomitant]
     Indication: HYPERTENSION
     Dosage: DOSING INFORMATION UNKNOWN
  6. HIGH BLOOD PRESSURE MEDICATION [Concomitant]
     Indication: HYPERTENSION
     Dosage: DOSING INFORMATION UNKNOWN

REACTIONS (6)
  - ABNORMAL BEHAVIOUR [None]
  - CHEST PAIN [None]
  - CONVULSION [None]
  - CORONARY ARTERY OCCLUSION [None]
  - HALLUCINATION [None]
  - LOSS OF CONSCIOUSNESS [None]
